FAERS Safety Report 7129044 (Version 7)
Quarter: 2015Q1

REPORT INFORMATION
  Report Type: Spontaneous
  Country: US (occurrence: US)
  Receive Date: 20090924
  Receipt Date: 20150223
  Transmission Date: 20150721
  Serious: Yes (Hospitalization)
  Sender: FDA-Public Use
  Company Number: US-BAYER-200930995NA

PATIENT
  Age: 27 Year
  Sex: Female
  Weight: 70 kg

DRUGS (8)
  1. TRAZODONE [Concomitant]
     Active Substance: TRAZODONE HYDROCHLORIDE
     Dosage: 25 - 50 MG G.HS
  2. BENADRYL [Concomitant]
     Active Substance: DIPHENHYDRAMINE HYDROCHLORIDE
     Dosage: 25 MG (DAILY DOSE), , INTRAVENOUS
     Route: 042
  3. YAZ [Suspect]
     Active Substance: DROSPIRENONE\ETHINYL ESTRADIOL
     Indication: CONTRACEPTION
     Dosage: 1 DF (DAILY DOSE), QD, ORAL
     Route: 048
     Dates: start: 20070308, end: 20070817
  4. ADVIL [Concomitant]
     Active Substance: IBUPROFEN
     Dates: start: 2000
  5. RELPAX [Concomitant]
     Active Substance: ELETRIPTAN HYDROBROMIDE
     Dosage: UNK
     Dates: start: 2003, end: 2007
  6. NORMAL SALINE [Concomitant]
     Active Substance: SODIUM CHLORIDE
     Dosage: 70 CC PER HOUR
  7. HEPARIN [Concomitant]
     Active Substance: HEPARIN SODIUM
  8. SOLU-MEDROL [Concomitant]
     Active Substance: METHYLPREDNISOLONE SODIUM SUCCINATE
     Dosage: 60 MG (DAILY DOSE), , INTRAVENOUS
     Route: 042

REACTIONS (25)
  - Hemiparesis [Not Recovered/Not Resolved]
  - Anxiety [None]
  - Palpitations [None]
  - Atelectasis [Unknown]
  - Abdominal discomfort [None]
  - Sleep disorder [None]
  - Dyslipidaemia [None]
  - Atrial septal defect [Unknown]
  - Chest discomfort [None]
  - Cerebrovascular accident [Not Recovered/Not Resolved]
  - Depression [Unknown]
  - Aphasia [Not Recovered/Not Resolved]
  - Anxiety [Unknown]
  - Malaise [Not Recovered/Not Resolved]
  - Mental disorder [None]
  - Fear of disease [None]
  - Tremor [None]
  - Nausea [Not Recovered/Not Resolved]
  - Anaemia [Unknown]
  - Speech disorder [Not Recovered/Not Resolved]
  - Cerebral autosomal dominant arteriopathy with subcortical infarcts and leukoencephalopathy [Not Recovered/Not Resolved]
  - Fear of death [None]
  - Fear of animals [None]
  - Dizziness [Not Recovered/Not Resolved]
  - Heart rate increased [None]

NARRATIVE: CASE EVENT DATE: 20070817
